FAERS Safety Report 15093939 (Version 1)
Quarter: 2018Q2

REPORT INFORMATION
  Report Type: Spontaneous
  Country: DE (occurrence: DE)
  Receive Date: 20180629
  Receipt Date: 20180629
  Transmission Date: 20180711
  Serious: Yes (Other)
  Sender: FDA-Public Use
  Company Number: DE-009507513-1806DEU012314

PATIENT
  Age: 68 Year
  Sex: Male

DRUGS (3)
  1. KEYTRUDA [Suspect]
     Active Substance: PEMBROLIZUMAB
     Dosage: 150 MG, Q3W (EVERY 21 DAYS)
     Dates: start: 20141109, end: 201606
  2. YERVOY [Suspect]
     Active Substance: IPILIMUMAB
     Dosage: 70 MG EVERY 28 DAYS
     Dates: start: 201411, end: 201606
  3. SANDOSTATIN [Concomitant]
     Active Substance: OCTREOTIDE ACETATE
     Dosage: LAR 30 MG EVERY 28 DAYS

REACTIONS (7)
  - Toxicity to various agents [Unknown]
  - Facial paralysis [Unknown]
  - Sjogren^s syndrome [Unknown]
  - Pharyngitis [Unknown]
  - Colitis [Unknown]
  - Pneumonitis [Not Recovered/Not Resolved]
  - Thyroiditis [Unknown]
